FAERS Safety Report 23924661 (Version 1)
Quarter: 2024Q2

REPORT INFORMATION
  Report Type: Spontaneous
  Country: GB (occurrence: GB)
  Receive Date: 20240531
  Receipt Date: 20240531
  Transmission Date: 20240716
  Serious: Yes (Disabling)
  Sender: FDA-Public Use
  Company Number: GB-MHRA-EMIS-625-7eb9b2d0-5f70-4aad-8e24-2140c3028c20

PATIENT
  Age: 50 Year
  Sex: Female
  Weight: 109.2 kg

DRUGS (1)
  1. DIGOXIN [Suspect]
     Active Substance: DIGOXIN
     Indication: Product used for unknown indication
     Dosage: 1 DOSAGE FORM, EVERY MORNING (ONE TO BE TAKEN EACH DAY IN THE MORNING)
     Route: 065
     Dates: start: 20240130, end: 20240515

REACTIONS (1)
  - Liver function test abnormal [Unknown]
